FAERS Safety Report 6349340-X (Version None)
Quarter: 2009Q3

REPORT INFORMATION
  Report Type: 
  Country: None (occurrence: None)
  Receive Date: 20090911
  Receipt Date: 20090831
  Transmission Date: 20100115
  Serious: Yes (Other)
  Sender: FDA-Public Use
  Company Number: US-ELI_LILLY_AND_COMPANY-US200902002423

PATIENT
  Sex: Female

DRUGS (21)
  1. BYETTA [Suspect]
     Indication: TYPE 2 DIABETES MELLITUS
     Dosage: 5 UG, 2/D
     Route: 058
     Dates: start: 20060803, end: 20070521
  2. BYETTA [Suspect]
     Dosage: 10 UG, 2/D
     Route: 058
     Dates: start: 20070521, end: 20090301
  3. BYETTA [Suspect]
     Dosage: 10 UG, 2/D
     Route: 058
  4. GABAPENTIN [Concomitant]
     Indication: NEUROPATHY PERIPHERAL
     Dosage: 1200 MG, 2/D
     Route: 065
  5. METFORMIN HCL [Concomitant]
     Indication: DIABETES MELLITUS
     Dosage: 2000 MG, DAILY (1/D)
     Route: 065
  6. OMEPRAZOLE [Concomitant]
     Indication: GASTROOESOPHAGEAL REFLUX DISEASE
     Dosage: 30 MG, DAILY (1/D)
     Route: 065
  7. CITALOPRAM HYDROBROMIDE [Concomitant]
     Dosage: 80 MG, DAILY (1/D)
     Route: 065
  8. ERGOCALCIFEROL [Concomitant]
     Dosage: 50000 U, WEEKLY (1/W)
     Route: 065
  9. MULTI-VITAMIN [Concomitant]
     Indication: SUPPLEMENTATION THERAPY
     Dosage: UNK, UNKNOWN
     Route: 065
  10. ASPIRIN [Concomitant]
     Dosage: UNK, UNKNOWN
     Route: 065
  11. IMITREX [Concomitant]
     Dosage: 50 MG, AS NEEDED
  12. HUMULIN 70/30 [Concomitant]
     Dosage: UNK, DAILY (1/D)
  13. ALBUTEROL [Concomitant]
     Dosage: UNK, AS NEEDED
     Route: 055
  14. AMBIEN [Concomitant]
     Dosage: 5 MG, AS NEEDED
  15. VITAMIN B-12 [Concomitant]
     Dosage: 1000 UG, MONTHLY (1/M)
     Route: 065
  16. NOVOLIN R [Concomitant]
     Dosage: UNK, EACH EVENING
  17. COMPAZINE [Concomitant]
     Dosage: 10 MG, AS NEEDED
     Route: 065
  18. ZOFRAN [Concomitant]
     Dosage: 8 MG, AS NEEDED
  19. SENOKOT [Concomitant]
     Dosage: UNK, AS NEEDED
  20. FLEXERIL [Concomitant]
     Dosage: UNK MG, AS NEEDED
  21. PULMICORT-100 [Concomitant]
     Dosage: 180 UG, AS NEEDED
     Route: 055

REACTIONS (4)
  - ASTHENIA [None]
  - B-CELL LYMPHOMA [None]
  - NIGHT SWEATS [None]
  - OFF LABEL USE [None]
